FAERS Safety Report 7906838-8 (Version None)
Quarter: 2011Q4

REPORT INFORMATION
  Report Type: 
  Country: None (occurrence: None)
  Receive Date: 20111110
  Receipt Date: 20111102
  Transmission Date: 20120403
  Serious: Yes (Other)
  Sender: FDA-Public Use
  Company Number: PR-ABBOTT-11P-131-0867335-00

PATIENT
  Sex: Male

DRUGS (4)
  1. HUMIRA [Suspect]
     Indication: PSORIATIC ARTHROPATHY
     Route: 058
     Dates: start: 20100101, end: 20111001
  2. HUMIRA [Suspect]
     Indication: PSORIASIS
  3. HUMIRA [Suspect]
     Indication: RHEUMATOID ARTHRITIS
  4. SYNTHROID [Concomitant]
     Indication: HYPOTHYROIDISM
     Route: 048

REACTIONS (2)
  - FALSE POSITIVE TUBERCULOSIS TEST [None]
  - HAEMOPTYSIS [None]
